FAERS Safety Report 5922974-X (Version None)
Quarter: 2008Q4

REPORT INFORMATION
  Report Type: 
  Country: None (occurrence: None)
  Receive Date: 20081018
  Receipt Date: 20081008
  Transmission Date: 20090506
  Serious: Yes (Disabling, Other)
  Sender: FDA-Public Use
  Company Number: US-PFIZER INC-2008043666

PATIENT
  Sex: Male

DRUGS (2)
  1. CELEBREX [Suspect]
     Indication: HIP SURGERY
     Dates: start: 20041004
  2. BEXTRA [Suspect]
     Indication: PAIN

REACTIONS (4)
  - BLOOD PRESSURE INCREASED [None]
  - SCAR [None]
  - SLEEP DISORDER [None]
  - STEVENS-JOHNSON SYNDROME [None]
